FAERS Safety Report 4635657-3 (Version None)
Quarter: 2005Q2

REPORT INFORMATION
  Report Type: 
  Country: None (occurrence: None)
  Receive Date: 20050414
  Receipt Date: 20050329
  Transmission Date: 20051028
  Serious: Yes (Death)
  Sender: FDA-Public Use
  Company Number: 10751

PATIENT
  Age: 19 Year

DRUGS (2)
  1. METHOTREXATE [Suspect]
     Indication: BONE SARCOMA
     Dosage: 12 G/M2
     Route: 042
  2. LEUCOVORIN CALCIUM [Concomitant]

REACTIONS (4)
  - ANAEMIA [None]
  - BONE MARROW DEPRESSION [None]
  - CARDIOPULMONARY FAILURE [None]
  - HAEMODIALYSIS [None]
